FAERS Safety Report 7127584-7 (Version None)
Quarter: 2010Q4

REPORT INFORMATION
  Report Type: 
  Country: None (occurrence: None)
  Receive Date: 20101129
  Receipt Date: 20101119
  Transmission Date: 20110411
  Serious: Yes (Other)
  Sender: FDA-Public Use
  Company Number: PHHY2010US79591

PATIENT
  Age: 70 Year
  Sex: Female
  Weight: 190 kg

DRUGS (26)
  1. RECLAST [Suspect]
     Indication: OSTEOPOROSIS
     Dosage: 5 MG ONCE PER YEAR
     Route: 042
     Dates: start: 20090101
  2. VYTORIN [Concomitant]
  3. LONTULO [Concomitant]
     Dosage: 7.5
  4. METOCLOPRAMIDE HYDROCHLORIDE [Concomitant]
  5. LEVOXYL [Concomitant]
  6. LIDODERM [Concomitant]
  7. ALTACE [Concomitant]
  8. ZANTAC [Concomitant]
  9. PLAVIX [Concomitant]
  10. LANTUS [Concomitant]
  11. SOLUSTON [Concomitant]
  12. ADVAIR DISKUS 100/50 [Concomitant]
  13. COMBIVENT                               /GFR/ [Concomitant]
  14. ZEMPLAR [Concomitant]
  15. CLONIDINE HYDROCHLORIDE [Concomitant]
  16. ALLOPURINOL [Concomitant]
  17. FREESTYLE GLUCOSE STWPS [Concomitant]
  18. LOVAZA [Concomitant]
  19. FOLBEE [Concomitant]
  20. AMITRIPTYLINE HYDROCHLORIDE [Concomitant]
  21. FLONASE [Concomitant]
  22. CLARITIN [Concomitant]
  23. FUWSENBTE [Concomitant]
  24. ATENOLOL [Concomitant]
  25. NOVOLOG [Concomitant]
  26. ZOFRAN [Concomitant]

REACTIONS (4)
  - DYSARTHRIA [None]
  - FATIGUE [None]
  - HYPERCALCAEMIA [None]
  - PAIN [None]
